FAERS Safety Report 11111559 (Version 1)
Quarter: 2015Q2

REPORT INFORMATION
  Report Type: Spontaneous
  Country: KR (occurrence: KR)
  Receive Date: 20150514
  Receipt Date: 20150514
  Transmission Date: 20150821
  Serious: Yes (Other)
  Sender: FDA-Public Use
  Company Number: KR-UCBSA-2015015059

PATIENT
  Age: 22 Year
  Sex: Female

DRUGS (6)
  1. LACOSAMIDE [Suspect]
     Active Substance: LACOSAMIDE
     Indication: SEIZURE
     Dosage: 100 MG/DAY
  2. TIANEPTINE [Concomitant]
     Active Substance: TIANEPTINE
     Indication: ANXIETY
  3. ZONISAMIDE. [Concomitant]
     Active Substance: ZONISAMIDE
     Indication: SEIZURE
     Dosage: 300 MG/DAY
  4. TIANEPTINE [Concomitant]
     Active Substance: TIANEPTINE
     Indication: DEPRESSION
     Dosage: 25 MG/DAY
  5. CLOBAZAM [Concomitant]
     Active Substance: CLOBAZAM
     Indication: SEIZURE
     Dosage: UNK
  6. CLOBAZAM [Concomitant]
     Active Substance: CLOBAZAM
     Dosage: 20 MG/DAY

REACTIONS (1)
  - Drug-induced liver injury [Recovering/Resolving]
